FAERS Safety Report 25336222 (Version 2)
Quarter: 2025Q2

REPORT INFORMATION
  Report Type: Spontaneous
  Country: MX (occurrence: MX)
  Receive Date: 20250520
  Receipt Date: 20250623
  Transmission Date: 20250717
  Serious: Yes (Hospitalization)
  Sender: NOVO NORDISK
  Company Number: MX-NOVOPROD-1429290

PATIENT
  Age: 2 Year
  Sex: Male
  Weight: 10.3 kg

DRUGS (1)
  1. NOVOEIGHT [Suspect]
     Active Substance: ANTIHEMOPHILIC FACTOR, HUMAN RECOMBINANT
     Indication: Factor VIII deficiency
     Dosage: 1000 IU, QOD
     Route: 042
     Dates: start: 202406

REACTIONS (6)
  - Influenza [Recovering/Resolving]
  - Pyrexia [Recovered/Resolved]
  - Diarrhoea [Recovered/Resolved]
  - Tremor [Unknown]
  - Infusion related reaction [Recovered/Resolved]
  - Pyrexia [Recovered/Resolved]

NARRATIVE: CASE EVENT DATE: 20250501
